FAERS Safety Report 16418320 (Version 3)
Quarter: 2019Q2

REPORT INFORMATION
  Report Type: Report from Study
  Country: CA (occurrence: CA)
  Receive Date: 20190612
  Receipt Date: 20190619
  Transmission Date: 20190711
  Serious: Yes (Hospitalization)
  Sender: FDA-Public Use
  Company Number: CA-AMGEN-CANCT2019081382

PATIENT
  Age: 68 Year
  Sex: Male
  Weight: 93.65 kg

DRUGS (25)
  1. TYLENOL [Concomitant]
     Active Substance: ACETAMINOPHEN
     Dosage: 650 MILLIGRAM
     Route: 048
     Dates: start: 20171129
  2. DEXTROSE 5% [Concomitant]
     Active Substance: DEXTROSE
     Dosage: 50-100 MILLILITER
     Dates: start: 20180808
  3. ONDANSETRON [Concomitant]
     Active Substance: ONDANSETRON
     Dosage: 8-16 MILLIGRAM
     Route: 048
     Dates: start: 20171115
  4. HYDROMORPHONE [Concomitant]
     Active Substance: HYDROMORPHONE
     Dosage: 2 MILLIGRAM
     Dates: start: 20171114
  5. LAX A DAY PHARMA [Concomitant]
     Dosage: 1 UNK
     Dates: start: 20171114
  6. BENADRYL [Concomitant]
     Active Substance: DIPHENHYDRAMINE HYDROCHLORIDE
     Dosage: 50 MILLIGRAM
     Route: 042
     Dates: start: 20171115
  7. STEMETIL [PROCHLORPERAZINE] [Concomitant]
     Dosage: 10 MILLIGRAM
     Route: 042
     Dates: start: 20171122
  8. AZITHROMYCIN ANHYDROUS. [Concomitant]
     Active Substance: AZITHROMYCIN ANHYDROUS
     Dosage: 250-500 MILLIGRAM
     Dates: start: 20190513, end: 20190518
  9. ZOMETA [Concomitant]
     Active Substance: ZOLEDRONIC ACID
     Dosage: 4 MILLIGRAM
     Route: 042
     Dates: start: 2016
  10. DILTIAZEM. [Concomitant]
     Active Substance: DILTIAZEM
     Dosage: 240 MILLIGRAM
     Dates: start: 20190212
  11. ASPIRIN [ACETYLSALICYLIC ACID] [Concomitant]
     Active Substance: ASPIRIN
     Dosage: 81 MILLIGRAM
     Dates: start: 20171115
  12. OLANZAPINE. [Concomitant]
     Active Substance: OLANZAPINE
     Dosage: 2.5 MILLIGRAM
     Dates: start: 20171115
  13. DARATUMUMAB [Suspect]
     Active Substance: DARATUMUMAB
     Indication: PLASMA CELL MYELOMA
     Dosage: 1504 MILLIGRAM, PER CHEMO REGIM
     Route: 042
     Dates: start: 20171115
  14. CANNABIS [Concomitant]
     Active Substance: CANNABIS SATIVA SUBSP. INDICA TOP
     Dosage: 0.5 MILLILITER
     Dates: start: 2016
  15. ACYCLOVIR [ACICLOVIR] [Concomitant]
     Active Substance: ACYCLOVIR
     Dosage: 400 MILLIGRAM
     Dates: start: 20171115
  16. MONTELUKAST [Concomitant]
     Active Substance: MONTELUKAST SODIUM
     Dosage: 10 MILLIGRAM
     Route: 048
     Dates: start: 20171115
  17. CARFILZOMIB [Suspect]
     Active Substance: CARFILZOMIB
     Indication: PLASMA CELL MYELOMA
     Dosage: 123 MILLIGRAM, PER CHEMO REGIM
     Route: 042
     Dates: start: 20171115, end: 20190424
  18. EPREX [Concomitant]
     Active Substance: ERYTHROPOIETIN
     Dosage: 40000 INTERNATIONAL UNIT AND 4000-40000 UNK
     Dates: start: 20180221
  19. DIPHENHYDRAMINE. [Concomitant]
     Active Substance: DIPHENHYDRAMINE
     Dosage: 50 MILLIGRAM
     Route: 042
     Dates: start: 20180919
  20. PROCHLORPERAZINE. [Concomitant]
     Active Substance: PROCHLORPERAZINE
     Dosage: 10 MILLIGRAM
     Route: 048
     Dates: start: 20171116
  21. DEXAMETHASONE. [Concomitant]
     Active Substance: DEXAMETHASONE
     Indication: PLASMA CELL MYELOMA
     Dosage: 4-40 MILLIGRAM
     Dates: start: 20171115
  22. PANTOPRAZOLE [Concomitant]
     Active Substance: PANTOPRAZOLE
     Dosage: 40 MILLIGRAM
     Dates: start: 20171115
  23. ELIQUIS [Concomitant]
     Active Substance: APIXABAN
     Dosage: 5 MILLIGRAM
     Dates: start: 20190205
  24. ACETAMINOPHEN. [Concomitant]
     Active Substance: ACETAMINOPHEN
     Dosage: 650 MILLIGRAM
     Dates: start: 20171115
  25. MOXIFLOXACIN. [Concomitant]
     Active Substance: MOXIFLOXACIN
     Dosage: 400 MILLIGRAM, QD
     Dates: start: 201901

REACTIONS (1)
  - Atrial flutter [Recovered/Resolved]

NARRATIVE: CASE EVENT DATE: 20190517
